FAERS Safety Report 4502457-4 (Version None)
Quarter: 2004Q4

REPORT INFORMATION
  Report Type: 
  Country: None (occurrence: None)
  Receive Date: 20041112
  Receipt Date: 20041027
  Transmission Date: 20050328
  Serious: No
  Sender: FDA-Public Use
  Company Number: A01200405487

PATIENT
  Age: 4 Year
  Sex: Male

DRUGS (1)
  1. PLAQUENIL [Suspect]

REACTIONS (1)
  - HEPATITIS [None]
